FAERS Safety Report 10527847 (Version 7)
Quarter: 2015Q2

REPORT INFORMATION
  Report Type: Spontaneous
  Country: US (occurrence: US)
  Receive Date: 20141020
  Receipt Date: 20150402
  Transmission Date: 20150821
  Serious: No
  Sender: FDA-Public Use
  Company Number: US-PFIZER INC-2014283375

PATIENT
  Age: 66 Year
  Sex: Female

DRUGS (1)
  1. SUTENT [Suspect]
     Active Substance: SUNITINIB MALATE
     Indication: MALIGNANT NEOPLASM OF EYE
     Dosage: 25 MG, DAILY
     Route: 048
     Dates: start: 20140911

REACTIONS (11)
  - Pain in extremity [Unknown]
  - Product use issue [Unknown]
  - Hyperaesthesia [Unknown]
  - Fatigue [Unknown]
  - Oral pain [Recovering/Resolving]
  - Insomnia [Unknown]
  - Blood pressure increased [Unknown]
  - Migraine [Unknown]
  - Abdominal pain upper [Unknown]
  - Dysgeusia [Recovering/Resolving]
  - Agitation [Unknown]

NARRATIVE: CASE EVENT DATE: 2014
